FAERS Safety Report 6673513-X (Version None)
Quarter: 2010Q2

REPORT INFORMATION
  Report Type: 
  Country: None (occurrence: None)
  Receive Date: 20100408
  Receipt Date: 20100331
  Transmission Date: 20101027
  Serious: Yes (Hospitalization)
  Sender: FDA-Public Use
  Company Number: BR-ABBOTT-10P-020-0635846-00

PATIENT
  Sex: Female
  Weight: 59 kg

DRUGS (5)
  1. HUMIRA [Suspect]
     Indication: RHEUMATOID ARTHRITIS
     Route: 058
     Dates: start: 20100301
  2. ARAVA [Concomitant]
     Indication: RHEUMATOID ARTHRITIS
     Route: 048
  3. ARTROLIVE [Concomitant]
     Indication: RHEUMATOID ARTHRITIS
     Route: 048
  4. METHOTREXATE [Concomitant]
     Indication: RHEUMATOID ARTHRITIS
     Route: 058
  5. CLIANE [Concomitant]
     Indication: MENOPAUSE
     Route: 048

REACTIONS (4)
  - BLOOD PRESSURE ABNORMAL [None]
  - DYSPNOEA [None]
  - MITRAL VALVE DISEASE [None]
  - THYROID NEOPLASM [None]
